FAERS Safety Report 4648251-5 (Version None)
Quarter: 2005Q2

REPORT INFORMATION
  Report Type: 
  Country: None (occurrence: None)
  Receive Date: 20050426
  Receipt Date: 20050413
  Transmission Date: 20051028
  Serious: Yes (Disabling, Other)
  Sender: FDA-Public Use
  Company Number: 2003114523

PATIENT
  Age: 68 Year
  Sex: Male
  Weight: 103.4201 kg

DRUGS (10)
  1. LIPITOR [Suspect]
     Indication: BLOOD CHOLESTEROL
     Dosage: 10 MG (1 IN 1 D), ORAL
     Route: 048
     Dates: end: 20040101
  2. DETROL LA [Suspect]
     Indication: BLADDER SPASM
     Dosage: 4 MG (4 MG, 1 IN 1 D), ORAL
     Route: 048
     Dates: start: 20050412
  3. DETROL LA [Suspect]
     Indication: HYPERTONIC BLADDER
     Dosage: 4 MG (4 MG, 1 IN 1 D), ORAL
     Route: 048
     Dates: start: 20050412
  4. FENOFIBRATE [Suspect]
     Indication: BLOOD CHOLESTEROL
     Dosage: 160 MG, ORAL
     Route: 048
     Dates: start: 20040101
  5. TAMSULOSIN HCL [Concomitant]
  6. LANSOPRAZOLE [Concomitant]
  7. ASPIRIN [Concomitant]
  8. FOLIC ACID [Concomitant]
  9. VITAMINS NOS (VITAMINS NOS) [Concomitant]
  10. ROFECOXIB [Concomitant]

REACTIONS (5)
  - DRY MOUTH [None]
  - LIVER FUNCTION TEST ABNORMAL [None]
  - MUSCULAR WEAKNESS [None]
  - TRANSIENT ISCHAEMIC ATTACK [None]
  - WALKING AID USER [None]
